FAERS Safety Report 7507109-4 (Version None)
Quarter: 2011Q2

REPORT INFORMATION
  Report Type: 
  Country: None (occurrence: None)
  Receive Date: 20110526
  Receipt Date: 20110516
  Transmission Date: 20111010
  Serious: Yes (Hospitalization, Other)
  Sender: FDA-Public Use
  Company Number: US-ELI_LILLY_AND_COMPANY-US200910004071

PATIENT
  Sex: Male
  Weight: 88.889 kg

DRUGS (7)
  1. METFORMIN HCL [Concomitant]
     Indication: DIABETES MELLITUS
     Dosage: 500 MG, BID
  2. JANUVIA [Concomitant]
     Indication: DIABETES MELLITUS
  3. BYETTA [Suspect]
     Dosage: 10 UG, BID
     Route: 058
     Dates: start: 20070101
  4. BYETTA [Suspect]
     Dosage: UNK, UNKNOWN
     Route: 058
  5. VIAGRA [Concomitant]
  6. DIOVAN [Concomitant]
     Indication: HYPERTENSION
     Dosage: 60 MG, QD
  7. DIOVAN [Concomitant]
     Dosage: 160 MG, QD

REACTIONS (8)
  - PANCREATITIS [None]
  - WEIGHT DECREASED [None]
  - FATIGUE [None]
  - NAUSEA [None]
  - VOMITING [None]
  - RENAL DISORDER [None]
  - ABDOMINAL PAIN [None]
  - GALLBLADDER DISORDER [None]
